FAERS Safety Report 10531729 (Version 2)
Quarter: 2014Q4

REPORT INFORMATION
  Report Type: Spontaneous
  Country: US (occurrence: US)
  Receive Date: 20141021
  Receipt Date: 20141112
  Transmission Date: 20150529
  Serious: No
  Sender: FDA-Public Use
  Company Number: US-009507513-1410USA009829

PATIENT
  Age: 20 Year
  Sex: Male
  Weight: 126.98 kg

DRUGS (3)
  1. HUMIRA [Concomitant]
     Active Substance: ADALIMUMAB
     Indication: CROHN^S DISEASE
     Dosage: UNK, UNKNOWN
  2. MIRALAX [Suspect]
     Active Substance: POLYETHYLENE GLYCOL 3350
     Indication: CROHN^S DISEASE
     Dosage: 17 G, QD
     Route: 048
     Dates: start: 201409
  3. MIRALAX [Suspect]
     Active Substance: POLYETHYLENE GLYCOL 3350
     Indication: CONSTIPATION
     Dosage: UNK UNK, QD
     Route: 048
     Dates: start: 201409

REACTIONS (3)
  - Incorrect drug administration duration [Unknown]
  - Product use issue [Unknown]
  - Product odour abnormal [Unknown]

NARRATIVE: CASE EVENT DATE: 201409
